FAERS Safety Report 5630326-5 (Version None)
Quarter: 2008Q1

REPORT INFORMATION
  Report Type: 
  Country: None (occurrence: None)
  Receive Date: 20080213
  Receipt Date: 20080207
  Transmission Date: 20080703
  Serious: Yes (Hospitalization)
  Sender: FDA-Public Use
  Company Number: 2008SP001512

PATIENT
  Age: 42 Year
  Sex: Female
  Weight: 67.1324 kg

DRUGS (2)
  1. PEG-INTRON [Suspect]
     Indication: HEPATITIS C
     Dosage: SC
     Route: 058
     Dates: start: 20071130
  2. RIBAVIRIN [Suspect]
     Indication: HEPATITIS C
     Dosage: PO
     Route: 048
     Dates: start: 20071130

REACTIONS (3)
  - INFLUENZA LIKE ILLNESS [None]
  - RESPIRATORY TRACT INFECTION [None]
  - WEIGHT DECREASED [None]
